FAERS Safety Report 24205598 (Version 2)
Quarter: 2024Q3

REPORT INFORMATION
  Report Type: Spontaneous
  Country: US (occurrence: US)
  Receive Date: 20240813
  Receipt Date: 20240819
  Transmission Date: 20241017
  Serious: Yes (Hospitalization, Other)
  Sender: DR REDDYS
  Company Number: None

PATIENT
  Age: 45 Year
  Sex: Female

DRUGS (2)
  1. GEMCITABINE [Suspect]
     Active Substance: GEMCITABINE
     Indication: Cholangiocarcinoma
     Dosage: GIVEN BODY SURFACE AREA OF 2.1 M2, EACH DOSE OF GEMCITABINE WAS 2,000 MG; ON DAY ONE AND DAY EIGHT O
  2. CAPECITABINE [Concomitant]
     Active Substance: CAPECITABINE
     Indication: Cholangiocarcinoma

REACTIONS (1)
  - Thrombotic microangiopathy [Unknown]
